FAERS Safety Report 9821776 (Version 2)
Quarter: 2014Q1

REPORT INFORMATION
  Report Type: Spontaneous
  Country: US (occurrence: US)
  Receive Date: 20140116
  Receipt Date: 20140226
  Transmission Date: 20141002
  Serious: Yes (Other)
  Sender: FDA-Public Use
  Company Number: US-PFIZER INC-2014012457

PATIENT
  Age: 65 Year
  Sex: Female
  Weight: 52.2 kg

DRUGS (5)
  1. LEVOXYL [Suspect]
     Indication: HYPOTHYROIDISM
     Dosage: UNK
     Dates: start: 201208, end: 2012
  2. AMLODIPINE [Concomitant]
     Dosage: UNK
  3. PREMARIN [Concomitant]
     Dosage: UNK
  4. CELEBREX [Concomitant]
     Dosage: UNK
  5. ZOLPIDEM [Concomitant]
     Dosage: UNK

REACTIONS (3)
  - Abasia [Recovered/Resolved]
  - Myalgia [Recovered/Resolved]
  - Activities of daily living impaired [Recovered/Resolved]
